FAERS Safety Report 4338563-7 (Version None)
Quarter: 2004Q1

REPORT INFORMATION
  Report Type: 
  Country: None (occurrence: None)
  Receive Date: 20040329
  Receipt Date: 20040202
  Transmission Date: 20041129
  Serious: No
  Sender: FDA-Public Use
  Company Number: USA040258302

PATIENT
  Age: 12 Year
  Sex: Male
  Weight: 57 kg

DRUGS (1)
  1. STRATTERA [Suspect]
     Dosage: 60 MG/DAY

REACTIONS (2)
  - ERYTHEMA [None]
  - URTICARIA [None]
